FAERS Safety Report 18223239 (Version 1)
Quarter: 2020Q3

REPORT INFORMATION
  Report Type: Spontaneous
  Country: US (occurrence: US)
  Receive Date: 20200902
  Receipt Date: 20200902
  Transmission Date: 20201103
  Serious: Yes (Other)
  Sender: FDA-Public Use
  Company Number: US-PURDUE PHARMA-USA-2020-0157093

PATIENT
  Sex: Female

DRUGS (7)
  1. OXYCONTIN [Suspect]
     Active Substance: OXYCODONE HYDROCHLORIDE
     Indication: PAIN
     Dosage: 20?40 MG, BID
     Route: 048
     Dates: start: 2000, end: 2002
  2. OXYCODONE HYDROCHLORIDE (SIMILAR TO NDA 22?272) [Suspect]
     Active Substance: OXYCODONE HYDROCHLORIDE
     Indication: PAIN
     Dosage: UNK
     Route: 048
  3. TYLENOL [Suspect]
     Active Substance: ACETAMINOPHEN
     Indication: PAIN
     Dosage: UNK
     Route: 048
  4. IBUPROFEN. [Suspect]
     Active Substance: IBUPROFEN
     Indication: PAIN
     Dosage: UNK
     Route: 048
  5. XANAX [Suspect]
     Active Substance: ALPRAZOLAM
     Indication: MUSCLE SPASMS
     Dosage: 5?10 MG, BID
     Route: 048
     Dates: start: 2000
  6. XANAX [Suspect]
     Active Substance: ALPRAZOLAM
     Indication: HYPOTONIA
  7. MELATONIN [Suspect]
     Active Substance: MELATONIN
     Indication: SLEEP DISORDER
     Dosage: UNK
     Route: 048

REACTIONS (11)
  - Road traffic accident [Unknown]
  - Gait disturbance [Not Recovered/Not Resolved]
  - Joint injury [Recovered/Resolved]
  - Fall [Unknown]
  - Spinal cord injury [Not Recovered/Not Resolved]
  - Head injury [Unknown]
  - Limb injury [Not Recovered/Not Resolved]
  - Exostosis [Not Recovered/Not Resolved]
  - Neck injury [Not Recovered/Not Resolved]
  - Drug dependence [Not Recovered/Not Resolved]
  - Constipation [Not Recovered/Not Resolved]

NARRATIVE: CASE EVENT DATE: 2000
